FAERS Safety Report 12852289 (Version 1)
Quarter: 2016Q4

REPORT INFORMATION
  Report Type: Spontaneous
  Country: US (occurrence: US)
  Receive Date: 20161015
  Receipt Date: 20161015
  Transmission Date: 20170207
  Serious: Yes (Other)
  Sender: FDA-Public Use
  Company Number: None

PATIENT
  Age: 52 Year
  Weight: 90.68 kg

DRUGS (7)
  1. BYDUREON [Suspect]
     Active Substance: EXENATIDE
     Indication: DIABETES MELLITUS
     Dosage: ?          QUANTITY:1 INJECTION(S);OTHER FREQUENCY:WEEKLY;?
     Route: 058
     Dates: start: 20161006, end: 20161013
  2. AMLODIPINE [Concomitant]
     Active Substance: AMLODIPINE BESYLATE
  3. HCTZ [Concomitant]
     Active Substance: HYDROCHLOROTHIAZIDE
  4. GLYBURIDE. [Concomitant]
     Active Substance: GLYBURIDE
  5. HAIR, SKIN AND NAILS VITAMIN [Concomitant]
  6. CLINDAMYCIN. [Concomitant]
     Active Substance: CLINDAMYCIN
  7. OMEGA RED FISH OIL [Concomitant]

REACTIONS (12)
  - Injection site swelling [None]
  - Injection site cellulitis [None]
  - Injection site erythema [None]
  - Throat irritation [None]
  - Injection site pruritus [None]
  - Dyspnoea [None]
  - Injection site nodule [None]
  - Injection site induration [None]
  - Heart rate increased [None]
  - Eye pruritus [None]
  - Pruritus generalised [None]
  - Injection site bruising [None]

NARRATIVE: CASE EVENT DATE: 20161014
